FAERS Safety Report 5528907-2 (Version None)
Quarter: 2007Q4

REPORT INFORMATION
  Report Type: 
  Country: None (occurrence: None)
  Receive Date: 20071129
  Receipt Date: 20071123
  Transmission Date: 20080405
  Serious: Yes (Hospitalization)
  Sender: FDA-Public Use
  Company Number: IT-AVENTIS-200715608EU

PATIENT
  Age: 94 Year
  Sex: Female

DRUGS (8)
  1. CLEXANE [Suspect]
     Route: 058
     Dates: start: 20071107, end: 20071113
  2. TAVANIC [Suspect]
     Indication: BRONCHOPNEUMONIA
     Route: 048
     Dates: start: 20071107, end: 20071113
  3. FIDATO [Suspect]
     Indication: BRONCHOPNEUMONIA
     Route: 042
     Dates: start: 20071107, end: 20071113
  4. RAMIPRIL [Concomitant]
     Route: 048
  5. LANSOPRAZOLE [Concomitant]
     Route: 048
  6. LACIDIPINE [Concomitant]
     Route: 048
  7. FUROSEMIDE [Concomitant]
     Route: 048
  8. ASPIRINA                           /00002701/ [Concomitant]
     Route: 048

REACTIONS (2)
  - HEPATITIS ACUTE [None]
  - HEPATOCELLULAR DAMAGE [None]
